FAERS Safety Report 9041570 (Version 1)
Quarter: 2013Q1

REPORT INFORMATION
  Report Type: Report from Study
  Country: US (occurrence: US)
  Receive Date: 20130129
  Receipt Date: 20130129
  Transmission Date: 20140127
  Serious: No
  Sender: FDA-Public Use
  Company Number: US-ABBOTT-12P-163-0904133-00

PATIENT
  Age: 40 Year
  Sex: Female

DRUGS (9)
  1. HUMIRA 40 MG/0.8 ML PEN [Suspect]
     Indication: COLITIS ULCERATIVE
     Route: 058
     Dates: start: 20120120
  2. OTC TYLENOL [Concomitant]
     Indication: PAIN
  3. OTC TYLENOL [Concomitant]
     Indication: HEADACHE
  4. ADVIL [Concomitant]
     Indication: PAIN
  5. ADVIL [Concomitant]
     Indication: HEADACHE
  6. HYDROCODONE [Concomitant]
     Indication: PAIN
     Dosage: 5/500 MG AS REQUIRED
  7. HYDROCODONE [Concomitant]
     Indication: COLITIS ULCERATIVE
  8. FISH OIL [Concomitant]
     Indication: VITAMIN SUPPLEMENTATION
     Dosage: DAILY
  9. FLONASE [Concomitant]
     Indication: HYPERSENSITIVITY
     Dosage: ORDERED DAILY

REACTIONS (2)
  - Injection site haemorrhage [Recovering/Resolving]
  - Injection site bruising [Recovering/Resolving]
